FAERS Safety Report 8591828-5 (Version None)
Quarter: 2012Q3

REPORT INFORMATION
  Report Type: 
  Country: None (occurrence: None)
  Receive Date: 20120814
  Receipt Date: 20120803
  Transmission Date: 20120928
  Serious: Yes (Other)
  Sender: FDA-Public Use
  Company Number: US-BAYER-2012-035350

PATIENT
  Age: 28 Year
  Sex: Female
  Weight: 61.224 kg

DRUGS (3)
  1. BEXTRA [Concomitant]
  2. YASMIN [Suspect]
     Indication: CONTRACEPTION
     Dosage: UNK
     Dates: start: 20030601, end: 20040301
  3. ZITHROMAX [Concomitant]
     Dosage: UNK
     Route: 048
     Dates: start: 20031224

REACTIONS (3)
  - DEEP VEIN THROMBOSIS [None]
  - INJURY [None]
  - OEDEMA PERIPHERAL [None]
